FAERS Safety Report 22384290 (Version 1)
Quarter: 2023Q2

REPORT INFORMATION
  Report Type: Spontaneous
  Country: US (occurrence: US)
  Receive Date: 20230530
  Receipt Date: 20230530
  Transmission Date: 20230722
  Serious: Yes (Hospitalization, Other)
  Sender: FDA-Public Use
  Company Number: US-002147023-NVSC2023US121491

PATIENT
  Sex: Female

DRUGS (2)
  1. RECLAST [Suspect]
     Active Substance: ZOLEDRONIC ACID
     Indication: Osteoporosis
     Dosage: UNK (5MG/100ML)
     Route: 065
     Dates: start: 20220330
  2. RECLAST [Suspect]
     Active Substance: ZOLEDRONIC ACID
     Dosage: UNK (5MG/100ML)
     Route: 065
     Dates: start: 20230406

REACTIONS (10)
  - Fall [Unknown]
  - Wrist fracture [Unknown]
  - Asthenia [Unknown]
  - Influenza like illness [Unknown]
  - Renal failure [Unknown]
  - Pain [Unknown]
  - Pyrexia [Unknown]
  - Nausea [Unknown]
  - Vomiting [Unknown]
  - Diarrhoea [Unknown]
